FAERS Safety Report 5666787-5 (Version None)
Quarter: 2008Q1

REPORT INFORMATION
  Report Type: 
  Country: None (occurrence: None)
  Receive Date: 20080315
  Receipt Date: 20071214
  Transmission Date: 20080703
  Serious: No
  Sender: FDA-Public Use
  Company Number: US-ABBOTT-07P-163-0431453-00

PATIENT
  Sex: Female
  Weight: 64.922 kg

DRUGS (5)
  1. HUMIRA [Suspect]
     Indication: RHEUMATOID ARTHRITIS
     Route: 058
     Dates: start: 20070904
  2. ESTROGEN NOS [Concomitant]
     Indication: DRUG USE FOR UNKNOWN INDICATION
     Route: 048
  3. KETOPROFEN [Concomitant]
     Indication: DRUG USE FOR UNKNOWN INDICATION
     Route: 048
  4. MIRGRANOL [Concomitant]
     Indication: MIGRAINE
  5. DHE SHOT [Concomitant]
     Indication: MIGRAINE

REACTIONS (2)
  - DIZZINESS [None]
  - INJECTION SITE IRRITATION [None]
